FAERS Safety Report 13246531 (Version 1)
Quarter: 2017Q1

REPORT INFORMATION
  Report Type: Spontaneous
  Country: DE (occurrence: DE)
  Receive Date: 20170217
  Receipt Date: 20170217
  Transmission Date: 20170428
  Serious: Yes (Congenital Anomaly, Other)
  Sender: FDA-Public Use
  Company Number: DE-TEVA-738541GER

PATIENT
  Age: 0 Day
  Sex: Female
  Weight: 3.7 kg

DRUGS (6)
  1. MISOPROSTOL. [Concomitant]
     Active Substance: MISOPROSTOL
     Indication: LABOUR INDUCTION
     Route: 064
     Dates: start: 20160712, end: 20160712
  2. LAMOTRIGIN DURA [Suspect]
     Active Substance: LAMOTRIGINE
     Dosage: 250 MILLIGRAM DAILY; FIRST 125-0-125 MG/DAY, THAN 150-0-150 MG/DAY
     Route: 064
     Dates: start: 20151007
  3. INSULIN BASAL [Concomitant]
     Active Substance: INSULIN NOS
     Indication: GESTATIONAL DIABETES
     Dosage: 11 INTERNATIONAL UNIT/DAY (ACCORDING TO BLOOD GLUCOSE LEVEL 5-11 INTERNATIONAL UNIT/DAY)
     Route: 064
  4. QUETIAPINE. [Suspect]
     Active Substance: QUETIAPINE
     Indication: SCHIZOAFFECTIVE DISORDER
     Dosage: 400 MILLIGRAM DAILY;
     Route: 064
     Dates: start: 20151007, end: 20160712
  5. LAMOTRIGIN DURA [Suspect]
     Active Substance: LAMOTRIGINE
     Indication: SCHIZOAFFECTIVE DISORDER
     Dosage: 300 MILLIGRAM DAILY; FIRST 125-0-125 MG/DAY, THAN 150-0-150 MG/DAY
     Route: 064
     Dates: end: 20160712
  6. FEMIBION [Concomitant]
     Active Substance: VITAMINS
     Indication: PROPHYLAXIS OF NEURAL TUBE DEFECT
     Route: 064
     Dates: start: 20151007, end: 20160712

REACTIONS (3)
  - Tachycardia foetal [Unknown]
  - Foetal exposure during pregnancy [Unknown]
  - Congenital hydronephrosis [Not Recovered/Not Resolved]

NARRATIVE: CASE EVENT DATE: 20160712
